FAERS Safety Report 4819174-3 (Version None)
Quarter: 2005Q4

REPORT INFORMATION
  Report Type: 
  Country: None (occurrence: None)
  Receive Date: 20051103
  Receipt Date: 20050909
  Transmission Date: 20060501
  Serious: Yes (Hospitalization)
  Sender: FDA-Public Use
  Company Number: US-GLAXOSMITHKLINE-A0573602A

PATIENT
  Age: 34 Year
  Sex: Female
  Weight: 56.8 kg

DRUGS (2)
  1. WELLBUTRIN XL [Suspect]
     Indication: DEPRESSION
     Dosage: 300MG PER DAY
     Route: 048
     Dates: start: 20050824, end: 20050908
  2. XANAX [Concomitant]
     Indication: PANIC DISORDER
     Dosage: .5MG AS REQUIRED
     Route: 048
     Dates: start: 20050824

REACTIONS (7)
  - EYE DISORDER [None]
  - LIP DISORDER [None]
  - LOCAL SWELLING [None]
  - OEDEMA PERIPHERAL [None]
  - PAIN [None]
  - RASH GENERALISED [None]
  - SWELLING FACE [None]
